FAERS Safety Report 4746059-3 (Version None)
Quarter: 2005Q3

REPORT INFORMATION
  Report Type: 
  Country: None (occurrence: None)
  Receive Date: 20050816
  Receipt Date: 20050809
  Transmission Date: 20060218
  Serious: Yes (Hospitalization)
  Sender: FDA-Public Use
  Company Number: US-JNJFOC-20050802915

PATIENT
  Age: 43 Year
  Sex: Female

DRUGS (2)
  1. ELMIRON [Suspect]
     Indication: DRUG USE FOR UNKNOWN INDICATION
     Route: 048
  2. UNSPECIFIED PAIN MEDICATIONS [Concomitant]

REACTIONS (1)
  - VAGINAL HAEMORRHAGE [None]
